FAERS Safety Report 9654451 (Version 1)
Quarter: 2013Q4

REPORT INFORMATION
  Report Type: Spontaneous
  Country: US (occurrence: US)
  Receive Date: 20131029
  Receipt Date: 20131029
  Transmission Date: 20140711
  Serious: Yes (Other)
  Sender: FDA-Public Use
  Company Number: CHPA2013US016123

PATIENT
  Age: 62 Year
  Sex: Female

DRUGS (1)
  1. EX-LAX MAX STR LAX PILLS SENNA [Suspect]
     Dosage: 1 DF, QHS
     Route: 048

REACTIONS (2)
  - Cerebrovascular accident [Unknown]
  - Incorrect drug administration duration [Unknown]
